FAERS Safety Report 4909116-4 (Version None)
Quarter: 2006Q1

REPORT INFORMATION
  Report Type: 
  Country: None (occurrence: None)
  Receive Date: 20060208
  Receipt Date: 20060125
  Transmission Date: 20060701
  Serious: Yes (Hospitalization)
  Sender: FDA-Public Use
  Company Number: US-2005-017775

PATIENT
  Age: 31 Year
  Sex: Female

DRUGS (1)
  1. BETASERON(INTERFERON BETA - 1B) INJECTION, 250UG [Suspect]
     Indication: MULTIPLE SCLEROSIS
     Dosage: 2 MIU, EVERY 2D, SUBCUTANEOUS
     Route: 058
     Dates: start: 20050817

REACTIONS (3)
  - BLOOD POTASSIUM DECREASED [None]
  - TREMOR [None]
  - URINARY TRACT INFECTION [None]
